FAERS Safety Report 16276933 (Version 1)
Quarter: 2019Q2

REPORT INFORMATION
  Report Type: Spontaneous
  Country: US (occurrence: US)
  Receive Date: 20190503
  Receipt Date: 20190503
  Transmission Date: 20190711
  Serious: Yes (Life-Threatening, Disabling, Other)
  Sender: FDA-Public Use
  Company Number: None

PATIENT
  Age: 41 Year
  Sex: Female
  Weight: 58.06 kg

DRUGS (1)
  1. MRI CONTRAST GADOLINIUM [Suspect]
     Active Substance: GADOLINIUM

REACTIONS (14)
  - Infusion site pain [None]
  - Renal haemorrhage [None]
  - Muscle spasms [None]
  - Muscle twitching [None]
  - Vein collapse [None]
  - Amnesia [None]
  - Renal disorder [None]
  - Infusion related reaction [None]
  - Cerebral atrophy [None]
  - Contrast media toxicity [None]
  - Visual impairment [None]
  - Cognitive disorder [None]
  - Arthralgia [None]
  - Disorientation [None]

NARRATIVE: CASE EVENT DATE: 20190107
